FAERS Safety Report 7321689-3 (Version None)
Quarter: 2011Q1

REPORT INFORMATION
  Report Type: 
  Country: None (occurrence: None)
  Receive Date: 20110228
  Receipt Date: 20100719
  Transmission Date: 20110831
  Serious: Yes (Other)
  Sender: FDA-Public Use
  Company Number: US-PFIZER INC-2010072275

PATIENT
  Sex: Female

DRUGS (4)
  1. CYMBALTA [Concomitant]
     Dosage: 60 MG, 1X/DAY
  2. GEODON [Suspect]
     Indication: AFFECTIVE DISORDER
     Dosage: 40MG IN THE MORNING AND 80MG AT BEDTIME
     Dates: start: 20081023
  3. VITAMIN E [Suspect]
     Dosage: UNK
  4. GEODON [Suspect]
     Indication: ANXIETY

REACTIONS (2)
  - TARDIVE DYSKINESIA [None]
  - DRUG INEFFECTIVE [None]
